FAERS Safety Report 6833425-5 (Version None)
Quarter: 2010Q3

REPORT INFORMATION
  Report Type: 
  Country: None (occurrence: None)
  Receive Date: 20100712
  Receipt Date: 20070430
  Transmission Date: 20110219
  Serious: No
  Sender: FDA-Public Use
  Company Number: US-PFIZER INC-2007022566

PATIENT
  Age: 65 Year
  Sex: Female
  Weight: 79.38 kg

DRUGS (10)
  1. CHANTIX [Suspect]
     Indication: SMOKING CESSATION THERAPY
     Dates: start: 20070122
  2. ZOCOR [Concomitant]
  3. PREVACID [Concomitant]
  4. QUINAPRIL HYDROCHLORIDE [Concomitant]
     Indication: HYPERTENSION
  5. EVISTA [Concomitant]
  6. FIBRE, DIETARY [Concomitant]
  7. CALCIUM [Concomitant]
  8. ACETYLSALICYLIC ACID [Concomitant]
  9. XANAX [Concomitant]
  10. ZOLOFT [Concomitant]

REACTIONS (4)
  - DIARRHOEA [None]
  - DYSPEPSIA [None]
  - ERUCTATION [None]
  - FLATULENCE [None]
